FAERS Safety Report 5087819-1 (Version None)
Quarter: 2006Q3

REPORT INFORMATION
  Report Type: 
  Country: None (occurrence: None)
  Receive Date: 20060824
  Receipt Date: 20060815
  Transmission Date: 20061208
  Serious: Yes (Other)
  Sender: FDA-Public Use
  Company Number: PHFR2006GB02569

PATIENT
  Age: 67 Year
  Sex: Female

DRUGS (2)
  1. ZOLEDRONIC ACID [Suspect]
     Indication: BREAST CANCER
     Dosage: 4MG
     Route: 042
  2. EXEMESTANE [Concomitant]
     Dosage: 25MG / DAY
     Route: 048
     Dates: start: 20040101

REACTIONS (4)
  - DENTAL TREATMENT [None]
  - INFECTION [None]
  - OSTEONECROSIS [None]
  - PAIN [None]
